FAERS Safety Report 10411255 (Version 2)
Quarter: 2014Q3

REPORT INFORMATION
  Report Type: Spontaneous
  Country: US (occurrence: US)
  Receive Date: 20140826
  Receipt Date: 20140826
  Transmission Date: 20150326
  Serious: No
  Sender: FDA-Public Use
  Company Number: US-ASTRAZENECA-2013SE89702

PATIENT
  Age: 57 Year
  Sex: Female
  Weight: 90.7 kg

DRUGS (7)
  1. LORAZAPAM [Concomitant]
     Active Substance: LORAZEPAM
     Indication: PANIC ATTACK
     Dosage: PRN
     Route: 048
  2. LORAZAPAM [Concomitant]
     Active Substance: LORAZEPAM
     Indication: DEPRESSION
     Dosage: PRN
     Route: 048
  3. ZERATEX [Concomitant]
     Indication: SINUS DISORDER
     Dosage: AT NIGHT
  4. PROZAC [Concomitant]
     Active Substance: FLUOXETINE HYDROCHLORIDE
     Indication: MAJOR DEPRESSION
     Route: 048
  5. SYMBICORT [Suspect]
     Active Substance: BUDESONIDE\FORMOTEROL FUMARATE DIHYDRATE
     Indication: CHRONIC OBSTRUCTIVE PULMONARY DISEASE
     Dosage: 160/4.5 MCG TWO PUFFS ONCE A DAY
     Route: 055
     Dates: start: 2013, end: 20131203
  6. RISPERDONE [Concomitant]
     Indication: DEPRESSION
     Route: 048
  7. SYMBICORT [Suspect]
     Active Substance: BUDESONIDE\FORMOTEROL FUMARATE DIHYDRATE
     Indication: ASTHMA
     Dosage: 160/4.5 MCG TWO PUFFS ONCE A DAY
     Route: 055
     Dates: start: 2013, end: 20131203

REACTIONS (6)
  - Off label use [Unknown]
  - Drug dose omission [Unknown]
  - Dyspnoea [Unknown]
  - Memory impairment [Unknown]
  - Visual impairment [Unknown]
  - Intentional product misuse [Unknown]

NARRATIVE: CASE EVENT DATE: 2013
